FAERS Safety Report 8353102-1 (Version None)
Quarter: 2012Q2

REPORT INFORMATION
  Report Type: 
  Country: None (occurrence: None)
  Receive Date: 20120511
  Receipt Date: 20120501
  Transmission Date: 20120825
  Serious: No
  Sender: FDA-Public Use
  Company Number: US-BAYER-2012-045370

PATIENT
  Age: 61 Year
  Sex: Female
  Weight: 122 kg

DRUGS (2)
  1. NAPROXEN SODIUM [Suspect]
     Indication: ARTHRITIS
     Dosage: 2 DF, PRN
  2. BLOOD PRESSURE MEDICATION (NOS) [Concomitant]

REACTIONS (1)
  - ARTHRITIS [None]
